FAERS Safety Report 5240102-3 (Version None)
Quarter: 2007Q1

REPORT INFORMATION
  Report Type: 
  Country: None (occurrence: None)
  Receive Date: 20070216
  Receipt Date: 20070206
  Transmission Date: 20070707
  Serious: Yes (Other)
  Sender: FDA-Public Use
  Company Number: JP-PFIZER INC-2007010594

PATIENT

DRUGS (2)
  1. DALACIN S [Suspect]
  2. EPINASTINE HYDROCHLORIDE [Suspect]
     Route: 048

REACTIONS (1)
  - APNOEIC ATTACK [None]
